FAERS Safety Report 12065366 (Version 1)
Quarter: 2016Q1

REPORT INFORMATION
  Report Type: Spontaneous
  Country: US (occurrence: US)
  Receive Date: 20160210
  Receipt Date: 20160210
  Transmission Date: 20160526
  Serious: No
  Sender: FDA-Public Use
  Company Number: US-ALLERGAN-1509983US

PATIENT
  Age: 31 Year
  Sex: Female

DRUGS (3)
  1. LIDOCAINE. [Suspect]
     Active Substance: LIDOCAINE
     Indication: HYPERTROPHIC SCAR
     Dosage: 1 %, SINGLE
  2. KENALOG [Suspect]
     Active Substance: TRIAMCINOLONE ACETONIDE
     Indication: HYPERTROPHIC SCAR
  3. BOTOX COSMETIC [Suspect]
     Active Substance: ONABOTULINUMTOXINA
     Indication: SKIN WRINKLING
     Dosage: 20 UNITS, SINGLE
     Dates: start: 20150523, end: 20150523

REACTIONS (6)
  - Swollen tongue [Not Recovered/Not Resolved]
  - Fatigue [Unknown]
  - Speech disorder [Not Recovered/Not Resolved]
  - Headache [Unknown]
  - Vision blurred [Unknown]
  - Myalgia [Unknown]

NARRATIVE: CASE EVENT DATE: 20150523
